FAERS Safety Report 25578801 (Version 1)
Quarter: 2025Q3

REPORT INFORMATION
  Report Type: Spontaneous
  Country: CA (occurrence: CA)
  Receive Date: 20250718
  Receipt Date: 20250718
  Transmission Date: 20251021
  Serious: Yes (Life-Threatening, Hospitalization, Other)
  Sender: SANDOZ
  Company Number: CA-SANDOZ-SDZ2025CA050868

PATIENT
  Age: 7 Decade
  Sex: Male

DRUGS (4)
  1. INDOMETHACIN [Suspect]
     Active Substance: INDOMETHACIN
     Indication: Headache
     Dosage: 25 MG, TID (3 EVERY 1 DAYS)
     Route: 048
  2. INDOMETHACIN [Suspect]
     Active Substance: INDOMETHACIN
     Route: 048
  3. PANTOPRAZOLE [Concomitant]
     Active Substance: PANTOPRAZOLE
     Indication: Product used for unknown indication
     Dosage: 40 MG, QD
     Route: 048
  4. TRANDOLAPRIL [Concomitant]
     Active Substance: TRANDOLAPRIL
     Indication: Hypertension
     Dosage: 4 MG, QD
     Route: 048

REACTIONS (1)
  - Hypertensive encephalopathy [Recovered/Resolved]
